FAERS Safety Report 13676168 (Version 1)
Quarter: 2017Q2

REPORT INFORMATION
  Report Type: Spontaneous
  Country: US (occurrence: US)
  Receive Date: 20170622
  Receipt Date: 20170622
  Transmission Date: 20170830
  Serious: Yes (Death, Other)
  Sender: FDA-Public Use
  Company Number: US-BAXTER-2017BAX024759

PATIENT
  Sex: Male

DRUGS (2)
  1. ALBUMIN [Suspect]
     Active Substance: ALBUMIN HUMAN
     Indication: IRRIGATION THERAPY
     Route: 065
     Dates: start: 20170220
  2. STERILE WATER FOR INJECTION [Suspect]
     Active Substance: WATER
     Indication: MEDICATION DILUTION
     Route: 065
     Dates: start: 20170220

REACTIONS (5)
  - Complications of transplanted liver [Unknown]
  - General physical health deterioration [Unknown]
  - Product preparation error [Unknown]
  - Incorrect product formulation administered [Unknown]
  - Death [Fatal]

NARRATIVE: CASE EVENT DATE: 201702
